FAERS Safety Report 10272467 (Version 1)
Quarter: 2014Q2

REPORT INFORMATION
  Report Type: Spontaneous
  Country: US (occurrence: None)
  Receive Date: 20140630
  Receipt Date: 20140630
  Transmission Date: 20141212
  Serious: No
  Sender: FDA-Public Use
  Company Number: None

PATIENT
  Age: 6 Year
  Sex: Female
  Weight: 23.13 kg

DRUGS (6)
  1. SINGULAR [Suspect]
     Indication: ASTHMA
     Route: 048
     Dates: start: 20130401, end: 20140628
  2. SINGULAR [Suspect]
     Indication: MULTIPLE ALLERGIES
     Route: 048
     Dates: start: 20130401, end: 20140628
  3. QVAR [Concomitant]
  4. ALBUTEROL [Concomitant]
  5. PERACTIN [Concomitant]
  6. NASAL SPRAY [Concomitant]

REACTIONS (3)
  - Alopecia [None]
  - Headache [None]
  - Oropharyngeal pain [None]
